FAERS Safety Report 12898022 (Version 2)
Quarter: 2016Q4

REPORT INFORMATION
  Report Type: Spontaneous
  Country: US (occurrence: US)
  Receive Date: 20161031
  Receipt Date: 20161201
  Transmission Date: 20170207
  Serious: Yes (Hospitalization)
  Sender: FDA-Public Use
  Company Number: US-ACTELION-A-US2016-144209

PATIENT
  Age: 56 Year
  Sex: Female

DRUGS (19)
  1. OPSUMIT [Suspect]
     Active Substance: MACITENTAN
     Indication: PULMONARY ARTERIAL HYPERTENSION
     Dosage: 10 MG, QD
     Route: 048
     Dates: start: 20160827, end: 20161017
  2. METOLAZONE. [Concomitant]
     Active Substance: METOLAZONE
     Dosage: 2.5 MG, MFW
  3. MORPHINE [Concomitant]
     Active Substance: MORPHINE
     Dosage: 15 MG, QID PRN
  4. LACTULOSE. [Concomitant]
     Active Substance: LACTULOSE
     Dosage: 20 G, QID PRN
  5. LIPITOR [Concomitant]
     Active Substance: ATORVASTATIN CALCIUM
     Dosage: 80 MG, UNK
     Dates: start: 2011
  6. KCL [Concomitant]
     Active Substance: POTASSIUM CHLORIDE
     Dosage: 20 MEQ, UNK
  7. FLOLAN [Concomitant]
     Active Substance: EPOPROSTENOL SODIUM
     Dosage: 28 NG/KG, PER MIN
  8. SILDENAFIL. [Concomitant]
     Active Substance: SILDENAFIL
     Dosage: 20 MG, TID
     Dates: start: 2007
  9. IPRATROPIUM [Concomitant]
     Active Substance: IPRATROPIUM
     Dosage: 0.02 %, Q4-Q6HR PRN
  10. FUROSEMIDE. [Concomitant]
     Active Substance: FUROSEMIDE
     Dosage: 80-120MG QAM, 80MG QPM
  11. ALBUTEROL. [Concomitant]
     Active Substance: ALBUTEROL
     Dosage: 2.5 MG/M3, Q4-Q6HR PRN
  12. OXYCODONE [Concomitant]
     Active Substance: OXYCODONE
     Dosage: 5 MG, BID, PRN
  13. SPIRONOLACTONE. [Concomitant]
     Active Substance: SPIRONOLACTONE
     Dosage: 25 MG, BID
  14. DIGOXIN. [Concomitant]
     Active Substance: DIGOXIN
     Dosage: 125 MCG, QD
     Dates: start: 2010
  15. ALLOPURINOL. [Concomitant]
     Active Substance: ALLOPURINOL
     Dosage: 150 MG, QD
  16. ATORVASTATIN [Concomitant]
     Active Substance: ATORVASTATIN
     Dosage: 80 MG, QD
  17. VENLAFAXINE [Concomitant]
     Active Substance: VENLAFAXINE HYDROCHLORIDE
     Dosage: 75 MG, BID
  18. OMEPRAZOLE. [Concomitant]
     Active Substance: OMEPRAZOLE
     Dosage: 20 MG, QD
  19. ERGOCALCIFEROL. [Concomitant]
     Active Substance: ERGOCALCIFEROL
     Dosage: 50000 U, Q1WEEK

REACTIONS (6)
  - Right ventricular failure [Recovered/Resolved]
  - Renal impairment [Recovered/Resolved]
  - Weight increased [Recovered/Resolved]
  - Condition aggravated [Recovered/Resolved]
  - Fluid retention [Recovered/Resolved]
  - Fluid overload [Recovered/Resolved]

NARRATIVE: CASE EVENT DATE: 20161014
